FAERS Safety Report 9486725 (Version 1)
Quarter: 2013Q3

REPORT INFORMATION
  Report Type: Spontaneous
  Country: US (occurrence: None)
  Receive Date: 20130827
  Receipt Date: 20130827
  Transmission Date: 20140515
  Serious: Yes (Hospitalization, Other)
  Sender: FDA-Public Use
  Company Number: 163-21880-13082312

PATIENT
  Age: 80 Year
  Sex: Female

DRUGS (1)
  1. REVLIMID (LENALIDOMIDE)(15 MILLIGRAM, CAPSULES) [Suspect]
     Indication: PLASMA CELL MYELOMA
     Route: 048
     Dates: start: 201303

REACTIONS (4)
  - Fatigue [None]
  - Asthenia [None]
  - Hyperhidrosis [None]
  - Haemorrhage intracranial [None]
